FAERS Safety Report 8366805-X (Version None)
Quarter: 2012Q1

REPORT INFORMATION
  Report Type: 
  Country: None (occurrence: None)
  Receive Date: 20120323
  Receipt Date: 20110412
  Transmission Date: 20120608
  Serious: Yes (Hospitalization)
  Sender: FDA-Public Use
  Company Number: 163-21880-11041342

PATIENT
  Age: 52 Year
  Sex: Female

DRUGS (4)
  1. LEVOTHYROXINE SODIUM [Concomitant]
  2. ASPIRIN [Concomitant]
  3. REVLIMID [Suspect]
     Indication: MULTIPLE MYELOMA
     Dosage: 15 MG, X28 DAYS, PO, 10 MG, X28 DAYS, PO
     Route: 048
     Dates: start: 20110401
  4. REVLIMID [Suspect]
     Indication: MULTIPLE MYELOMA
     Dosage: 15 MG, X28 DAYS, PO, 10 MG, X28 DAYS, PO
     Route: 048
     Dates: start: 20110302

REACTIONS (1)
  - PNEUMONIA [None]
